FAERS Safety Report 13905605 (Version 1)
Quarter: 2017Q3

REPORT INFORMATION
  Report Type: Spontaneous
  Country: US (occurrence: US)
  Receive Date: 20170825
  Receipt Date: 20170825
  Transmission Date: 20171127
  Serious: Yes (Hospitalization)
  Sender: FDA-Public Use
  Company Number: US-BAYER-2017-156413

PATIENT
  Sex: Male

DRUGS (4)
  1. ISOSORBIDE. [Suspect]
     Active Substance: ISOSORBIDE
  2. TOPROL XL [Suspect]
     Active Substance: METOPROLOL SUCCINATE
  3. BAYER ASPIRIN [Suspect]
     Active Substance: ASPIRIN
  4. DIGOXIN. [Concomitant]
     Active Substance: DIGOXIN

REACTIONS (1)
  - Syncope [Unknown]
